FAERS Safety Report 19704256 (Version 1)
Quarter: 2021Q3

REPORT INFORMATION
  Report Type: Other
  Country: JP (occurrence: JP)
  Receive Date: 20210816
  Receipt Date: 20210816
  Transmission Date: 20211014
  Serious: Yes (Other)
  Sender: FDA-Public Use
  Company Number: JP-ROCHE-2889680

PATIENT
  Age: 59 Year
  Sex: Female
  Weight: 41.6 kg

DRUGS (1)
  1. SATRALIZUMAB. [Suspect]
     Active Substance: SATRALIZUMAB
     Indication: NEUROMYELITIS OPTICA SPECTRUM DISORDER
     Route: 058
     Dates: start: 20201110

REACTIONS (1)
  - Diverticulitis [Unknown]
